FAERS Safety Report 11230426 (Version 3)
Quarter: 2015Q3

REPORT INFORMATION
  Report Type: Spontaneous
  Country: JP (occurrence: JP)
  Receive Date: 20150701
  Receipt Date: 20150706
  Transmission Date: 20151125
  Serious: Yes (Other)
  Sender: FDA-Public Use
  Company Number: JP-HOSPIRA-2912058

PATIENT
  Age: 58 Year
  Sex: Male
  Weight: 71 kg

DRUGS (6)
  1. PRECEDEX [Suspect]
     Active Substance: DEXMEDETOMIDINE HYDROCHLORIDE
     Indication: SEDATIVE THERAPY
     Dosage: MAINTENANCE DOSE: 0.32 MCG/KG/HR
     Route: 042
     Dates: start: 20140811, end: 20140811
  2. LIDOCAINE. [Concomitant]
     Active Substance: LIDOCAINE
     Indication: INFILTRATION ANAESTHESIA
     Dosage: SUBTENON
     Route: 050
     Dates: start: 20140811
  3. PRECEDEX [Suspect]
     Active Substance: DEXMEDETOMIDINE HYDROCHLORIDE
     Indication: SEDATIVE THERAPY
     Dosage: MAINTENANCE DOSE: 4.85 MCG/KG/HR
     Route: 042
     Dates: start: 20140811, end: 20140811
  4. PRECEDEX [Suspect]
     Active Substance: DEXMEDETOMIDINE HYDROCHLORIDE
     Indication: SEDATIVE THERAPY
     Dosage: MAINTENANCE DOSE: 0.32 MCG/KG/HR
     Route: 042
     Dates: start: 20140811, end: 20140811
  5. PRECEDEX [Suspect]
     Active Substance: DEXMEDETOMIDINE HYDROCHLORIDE
     Indication: SEDATIVE THERAPY
     Dosage: MAINTENANCE DOSE: 0.25 MCG/KG/HR
     Route: 042
     Dates: start: 20140811, end: 20140811
  6. PRECEDEX [Suspect]
     Active Substance: DEXMEDETOMIDINE HYDROCHLORIDE
     Indication: SEDATIVE THERAPY
     Dosage: MAINTENANCE DOSE: 0.25 MCG/KG/HR
     Route: 042
     Dates: start: 20140811, end: 20140811

REACTIONS (3)
  - Restlessness [Recovering/Resolving]
  - Oxygen saturation decreased [Recovered/Resolved]
  - Heart rate decreased [Recovered/Resolved]

NARRATIVE: CASE EVENT DATE: 20140811
